FAERS Safety Report 14573818 (Version 2)
Quarter: 2018Q2

REPORT INFORMATION
  Report Type: Report from Study
  Country: NL (occurrence: NL)
  Receive Date: 20180226
  Receipt Date: 20180629
  Transmission Date: 20180711
  Serious: Yes (Hospitalization)
  Sender: FDA-Public Use
  Company Number: NL-ROCHE-2074907

PATIENT
  Age: 69 Year
  Sex: Female

DRUGS (4)
  1. BEVACIZUMAB. [Suspect]
     Active Substance: BEVACIZUMAB
     Indication: NON-SMALL CELL LUNG CANCER
     Dosage: UNIT DOSE AS PER PROTOCOL?MOST RECENT DOSE OF BEVACIZUMAB PRIOR TO EVENT ONSET WAS ON 02/FEB/2018 (1
     Route: 042
     Dates: start: 20171124
  2. PACLITAXEL. [Suspect]
     Active Substance: PACLITAXEL
     Indication: NON-SMALL CELL LUNG CANCER
     Dosage: UNIT DOSE AND FREQUENCY AS PER PROTOCOL?MOST RECENT DOSE OF PACLITAXEL PRIOR TO EVENT ONSET WAS ON 0
     Route: 042
     Dates: start: 20171124
  3. SINEMET [Concomitant]
     Active Substance: CARBIDOPA\LEVODOPA
     Indication: PARKINSON^S DISEASE
  4. CARBOPLATIN. [Suspect]
     Active Substance: CARBOPLATIN
     Indication: NON-SMALL CELL LUNG CANCER
     Dosage: DOSE (AUC 6) AND FREQUENCY AS PER PROTOCOL?MOST RECENT DOSE OF CARBOPLATIN PRIOR TO EVENT ONSET WAS
     Route: 042
     Dates: start: 20171124

REACTIONS (1)
  - Hypercalcaemia [Recovered/Resolved]

NARRATIVE: CASE EVENT DATE: 20180209
